FAERS Safety Report 17972727 (Version 1)
Quarter: 2020Q2

REPORT INFORMATION
  Report Type: Spontaneous
  Country: US (occurrence: US)
  Receive Date: 20200630
  Receipt Date: 20200630
  Transmission Date: 20200714
  Serious: Yes (Other)
  Sender: FDA-Public Use
  Company Number: None

PATIENT
  Age: 53 Year
  Sex: Female
  Weight: 77.56 kg

DRUGS (2)
  1. BUPOPRION XL 300 MG (MBR) [Suspect]
     Active Substance: BUPROPION
     Indication: PERSISTENT DEPRESSIVE DISORDER
     Route: 048
     Dates: start: 2017
  2. BUPOPRION XL 300 MG (MBR) [Suspect]
     Active Substance: BUPROPION
     Indication: BIPOLAR DISORDER
     Route: 048
     Dates: start: 2017

REACTIONS (2)
  - Drug ineffective [None]
  - Product substitution issue [None]
